FAERS Safety Report 8200254-X (Version None)
Quarter: 2012Q1

REPORT INFORMATION
  Report Type: 
  Country: None (occurrence: None)
  Receive Date: 20120312
  Receipt Date: 20120309
  Transmission Date: 20120608
  Serious: Yes (Other)
  Sender: FDA-Public Use
  Company Number: US-PFIZER INC-2012063536

PATIENT
  Sex: Female
  Weight: 113 kg

DRUGS (7)
  1. CELEBREX [Suspect]
     Indication: MUSCULOSKELETAL STIFFNESS
  2. CELEBREX [Suspect]
     Indication: INTERVERTEBRAL DISC DISORDER
  3. PROZAC [Concomitant]
     Indication: DEPRESSION
     Dosage: 60 MG, 3X/DAY
  4. CELEBREX [Suspect]
     Indication: PAIN
     Dosage: 200 MG, 2X/DAY
  5. PRILOSEC [Concomitant]
     Indication: GASTROOESOPHAGEAL REFLUX DISEASE
     Dosage: 40 MG, DAILY
  6. CELEBREX [Suspect]
     Indication: FIBROMYALGIA
     Dosage: 200 MG, DAILY
  7. LISPRIL [Concomitant]
     Indication: HYPERTENSION
     Dosage: 12.5 MG, DAILY

REACTIONS (3)
  - ANKLE FRACTURE [None]
  - DIABETES MELLITUS [None]
  - ARTHRALGIA [None]
